FAERS Safety Report 12300257 (Version 8)
Quarter: 2016Q3

REPORT INFORMATION
  Report Type: Spontaneous
  Country: US (occurrence: US)
  Receive Date: 20160425
  Receipt Date: 20160725
  Transmission Date: 20161109
  Serious: Yes (Hospitalization, Other)
  Sender: FDA-Public Use
  Company Number: US-PFIZER INC-2016217534

PATIENT
  Age: 79 Year
  Sex: Female

DRUGS (2)
  1. SUTENT [Suspect]
     Active Substance: SUNITINIB MALATE
     Indication: METASTATIC RENAL CELL CARCINOMA
     Dosage: 37.5 MG, CYCLIC (3 WEEKS ON/1 WEEK OFF)
     Dates: start: 20160316, end: 20160502
  2. SUTENT [Suspect]
     Active Substance: SUNITINIB MALATE
     Dosage: 25 MG, CYCLIC (3 WEEKS ON AND 1 WEEK OFF)
     Dates: start: 20160613

REACTIONS (20)
  - Glossitis [Recovered/Resolved]
  - Kidney infection [Recovered/Resolved]
  - Dehydration [Recovered/Resolved]
  - Hot flush [Unknown]
  - Somnolence [Not Recovered/Not Resolved]
  - Diarrhoea [Not Recovered/Not Resolved]
  - Decreased appetite [Unknown]
  - Nausea [Unknown]
  - Asthenia [Unknown]
  - Scab [Unknown]
  - Abdominal discomfort [Unknown]
  - Dysgeusia [Unknown]
  - Dizziness [Recovered/Resolved]
  - Weight decreased [Recovered/Resolved]
  - Loss of consciousness [Recovered/Resolved]
  - Glossodynia [Recovered/Resolved]
  - Oral pain [Recovered/Resolved]
  - Gingival pain [Recovered/Resolved]
  - Gingival disorder [Recovered/Resolved]
  - Sluggishness [Not Recovered/Not Resolved]
